FAERS Safety Report 9898391 (Version 2)
Quarter: 2014Q2

REPORT INFORMATION
  Report Type: Report from Study
  Country: AU (occurrence: AU)
  Receive Date: 20140214
  Receipt Date: 20140522
  Transmission Date: 20141212
  Serious: Yes (Hospitalization)
  Sender: FDA-Public Use
  Company Number: AU-BAYER-2014-022099

PATIENT
  Age: 59 Year
  Sex: Female

DRUGS (1)
  1. BLINDED ACETYLSALICYLIC ACID({=100 MG) [Suspect]
     Indication: THROMBOSIS PROPHYLAXIS

REACTIONS (4)
  - Vascular access complication [Recovered/Resolved]
  - Arteriovenous fistula site infection [Recovered/Resolved]
  - Arteriovenous fistula site complication [Recovered/Resolved]
  - Arteriovenous fistula operation [Recovered/Resolved]
